FAERS Safety Report 8024430-4 (Version None)
Quarter: 2012Q1

REPORT INFORMATION
  Report Type: 
  Country: None (occurrence: None)
  Receive Date: 20120105
  Receipt Date: 20111226
  Transmission Date: 20120608
  Serious: Yes (Life-Threatening, Hospitalization)
  Sender: FDA-Public Use
  Company Number: JP-NOVOPROD-340304

PATIENT

DRUGS (11)
  1. AMLODIPINE [Concomitant]
     Indication: HYPERTENSION
     Dosage: 5 MG, QD
     Route: 048
     Dates: start: 20100201
  2. METHYCOBAL [Concomitant]
     Indication: SPINAL OSTEOARTHRITIS
     Dosage: 1500 A?G, QD
     Route: 048
  3. ASPIRIN [Suspect]
     Indication: ANGINA PECTORIS
     Dosage: 100 MG, QD
     Route: 048
     Dates: start: 20080201
  4. MICARDIS [Concomitant]
     Indication: HYPERTENSION
     Dosage: 40 MG, QD
     Route: 048
     Dates: start: 20070301
  5. VICTOZA [Suspect]
     Indication: TYPE 2 DIABETES MELLITUS
     Dosage: 0.3 MG, QD
     Route: 058
     Dates: start: 20111031, end: 20111101
  6. MAGNESIUM SULFATE [Concomitant]
     Dates: start: 20111101
  7. TICLOPIDINE HCL [Suspect]
     Indication: ANGINA PECTORIS
     Dosage: 100 MG, QD
     Dates: start: 20080201
  8. CARVEDILOL [Concomitant]
     Indication: HYPERTENSION
     Dosage: 5 MG, QD
     Route: 048
     Dates: start: 20080201
  9. VICTOZA [Suspect]
     Dosage: 0.6 MG, QD
     Route: 058
     Dates: start: 20111117, end: 20111101
  10. LYRICA [Concomitant]
     Indication: SPINAL OSTEOARTHRITIS
     Dosage: 50 MG, QD
     Route: 048
     Dates: start: 20111001
  11. CRESTOR [Concomitant]
     Indication: DYSLIPIDAEMIA
     Dosage: 2.5 MG, QD
     Route: 048
     Dates: start: 20030920

REACTIONS (1)
  - MALLORY-WEISS SYNDROME [None]
